FAERS Safety Report 19918397 (Version 2)
Quarter: 2022Q1

REPORT INFORMATION
  Report Type: Spontaneous
  Country: RU (occurrence: RU)
  Receive Date: 20211004
  Receipt Date: 20220105
  Transmission Date: 20220424
  Serious: Yes (Other)
  Sender: FDA-Public Use
  Company Number: RU-SA-2021SA323338

PATIENT
  Age: 24 Year
  Sex: Male

DRUGS (4)
  1. ELOCTA [Suspect]
     Active Substance: EFMOROCTOCOG ALFA
     Indication: Factor VIII deficiency
     Dosage: 3500 IU, BIW
     Route: 042
     Dates: start: 20210611
  2. ELOCTA [Suspect]
     Active Substance: EFMOROCTOCOG ALFA
     Indication: Factor VIII deficiency
     Dosage: 3500 IU, BIW
     Route: 042
     Dates: start: 20210611
  3. ELOCTA [Suspect]
     Active Substance: EFMOROCTOCOG ALFA
     Dosage: 3500 IU (ADDITIONAL DOSE)
     Route: 042
     Dates: start: 20210910, end: 20210910
  4. ELOCTA [Suspect]
     Active Substance: EFMOROCTOCOG ALFA
     Dosage: 3500 IU (ADDITIONAL DOSE)
     Route: 042
     Dates: start: 20210910, end: 20210910

REACTIONS (1)
  - Haemarthrosis [Recovered/Resolved]

NARRATIVE: CASE EVENT DATE: 20210706
